FAERS Safety Report 5339243-1 (Version None)
Quarter: 2007Q2

REPORT INFORMATION
  Report Type: 
  Country: None (occurrence: None)
  Receive Date: 20070329
  Receipt Date: 20070226
  Transmission Date: 20071010
  Serious: Yes (Other)
  Sender: FDA-Public Use
  Company Number: A03200701664

PATIENT
  Age: 77 Year
  Sex: Female
  Weight: 58.9676 kg

DRUGS (4)
  1. AMBIEN [Suspect]
     Dosage: 12.5 MG ONCE - ORAL
     Route: 048
     Dates: start: 20061201, end: 20061201
  2. AMBIEN [Suspect]
     Dosage: 6.25 MG QD - ORAL
     Route: 048
  3. PAXIL [Suspect]
     Dosage: 25 MG QD - ORAL
     Route: 048
     Dates: start: 20061224
  4. PAXIL [Suspect]
     Dosage: 12.5 MG QD - ORAL
     Route: 048

REACTIONS (5)
  - AMNESIA [None]
  - BALANCE DISORDER [None]
  - FALL [None]
  - HALLUCINATION [None]
  - PAIN [None]
